FAERS Safety Report 6294538-2 (Version None)
Quarter: 2009Q3

REPORT INFORMATION
  Report Type: 
  Country: None (occurrence: None)
  Receive Date: 20090803
  Receipt Date: 20090721
  Transmission Date: 20100115
  Serious: Yes (Hospitalization, Other)
  Sender: FDA-Public Use
  Company Number: US-BAYER-200917585GPV

PATIENT
  Age: 35 Year
  Sex: Female
  Weight: 59 kg

DRUGS (8)
  1. CAMPATH [Suspect]
     Indication: MULTIPLE SCLEROSIS
     Route: 042
     Dates: start: 20040726, end: 20040728
  2. CAMPATH [Suspect]
     Route: 042
     Dates: start: 20050914, end: 20050916
  3. CAMPATH [Suspect]
     Route: 042
     Dates: start: 20030804, end: 20030808
  4. FINGOLIMOD [Concomitant]
     Indication: MULTIPLE SCLEROSIS
     Route: 065
     Dates: start: 20070207, end: 20071106
  5. BIRTH CONTROL PATCH [Concomitant]
     Indication: CONTRACEPTION
     Route: 062
     Dates: start: 20060405
  6. SINGULAIR [Concomitant]
     Indication: ASTHMA
     Route: 048
     Dates: start: 20061208
  7. ALBUTEROL [Concomitant]
     Indication: ASTHMA
     Route: 065
     Dates: start: 19830101
  8. LEVOTHYROXINE SODIUM [Concomitant]
     Indication: THYROIDECTOMY
     Route: 048
     Dates: start: 20090214

REACTIONS (2)
  - HYPERTHYROIDISM [None]
  - THYROID CANCER [None]
